FAERS Safety Report 5922951-9 (Version None)
Quarter: 2008Q4

REPORT INFORMATION
  Report Type: 
  Country: None (occurrence: None)
  Receive Date: 20081018
  Receipt Date: 20081007
  Transmission Date: 20090506
  Serious: Yes (Other)
  Sender: FDA-Public Use
  Company Number: US-PFIZER INC-2008085424

PATIENT
  Sex: Female

DRUGS (2)
  1. DETROL LA [Suspect]
     Indication: HYPERTONIC BLADDER
     Dosage: TEXT:4 MG DAILY EVERY DAY TDD:4 MG
     Dates: start: 19990101, end: 20070101
  2. CHANTIX [Interacting]
     Dates: start: 20070101

REACTIONS (5)
  - BRONCHITIS [None]
  - DRUG INTERACTION [None]
  - NAUSEA [None]
  - NEUROMUSCULAR BLOCKADE [None]
  - SYRINGOMYELIA [None]
